FAERS Safety Report 20734749 (Version 1)
Quarter: 2022Q2

REPORT INFORMATION
  Report Type: Spontaneous
  Country: US (occurrence: None)
  Receive Date: 20220420
  Receipt Date: 20220420
  Transmission Date: 20220720
  Serious: Yes (unspecified)
  Sender: FDA-Public Use
  Company Number: None

PATIENT
  Age: 78 Year
  Sex: Female
  Weight: 87.75 kg

DRUGS (9)
  1. REPATHA [Suspect]
     Active Substance: EVOLOCUMAB
     Indication: Blood cholesterol increased
     Dosage: OTHER QUANTITY : 2 INJECTION(S);?OTHER FREQUENCY : 2XMONTH;?
     Route: 058
     Dates: start: 20211110
  2. LOSARTAN POTASSIUM [Concomitant]
     Active Substance: LOSARTAN POTASSIUM
  3. ELIQUIS [Concomitant]
     Active Substance: APIXABAN
  4. DEVICE [Concomitant]
     Active Substance: DEVICE
  5. STENT [Concomitant]
  6. GENERIC WOMEN^S VITAMINS [Concomitant]
  7. PROBIOTICS NOS [Concomitant]
     Active Substance: PROBIOTICS NOS
  8. VITAMIN D NOS [Concomitant]
     Active Substance: VITAMIN D NOS
  9. MAG/CALC/ZINC COMBO [Concomitant]

REACTIONS (8)
  - Muscle disorder [None]
  - Gait disturbance [None]
  - Asthenia [None]
  - Dyspnoea [None]
  - Vertigo [None]
  - Muscular weakness [None]
  - Loss of personal independence in daily activities [None]
  - Myocardial infarction [None]

NARRATIVE: CASE EVENT DATE: 20211113
